FAERS Safety Report 4685676-6 (Version None)
Quarter: 2005Q2

REPORT INFORMATION
  Report Type: 
  Country: None (occurrence: None)
  Receive Date: 20050608
  Receipt Date: 20050524
  Transmission Date: 20051028
  Serious: Yes (Disabling)
  Sender: FDA-Public Use
  Company Number: RENA-11332

PATIENT
  Age: 55 Year
  Sex: Male
  Weight: 51.6 kg

DRUGS (15)
  1. RENAGEL [Suspect]
     Indication: HYPERPHOSPHATAEMIA
     Dosage: 1.5 G TID PO
     Route: 048
     Dates: start: 20040901
  2. PURSENNID [Suspect]
     Indication: CONSTIPATION
  3. CALTAN [Suspect]
     Dates: start: 20050131
  4. KALIMATE [Concomitant]
  5. NIVADIL [Concomitant]
  6. CARDENALIN [Concomitant]
  7. PURSENNID [Concomitant]
  8. HALCION [Concomitant]
  9. VERAPAMIL [Concomitant]
  10. ALOSITOL [Concomitant]
  11. FERRO-GRADUMET [Concomitant]
  12. MICARDIS [Concomitant]
  13. ALDOMET [Concomitant]
  14. RISUMIC [Concomitant]
  15. CALTAN [Concomitant]

REACTIONS (4)
  - CONSTIPATION [None]
  - DIVERTICULAR PERFORATION [None]
  - LARGE INTESTINE PERFORATION [None]
  - PERITONITIS [None]
